FAERS Safety Report 23587425 (Version 1)
Quarter: 2024Q1

REPORT INFORMATION
  Report Type: Spontaneous
  Country: CA (occurrence: CA)
  Receive Date: 20240301
  Receipt Date: 20240301
  Transmission Date: 20240410
  Serious: Yes (Other)
  Sender: FDA-Public Use
  Company Number: CA-PFIZER INC-202400052027

PATIENT
  Age: 34 Year
  Sex: Female
  Weight: 81 kg

DRUGS (37)
  1. ERYTHROMYCIN [Suspect]
     Active Substance: ERYTHROMYCIN
     Dosage: 1 DF, 1X/DAY
  2. ERYTHROMYCIN [Suspect]
     Active Substance: ERYTHROMYCIN
     Indication: Acne
     Dosage: 1 DF, 1X/DAY
     Route: 061
  3. ERYTHROMYCIN [Suspect]
     Active Substance: ERYTHROMYCIN
     Dosage: 1 DF, 1X/DAY
  4. ERYTHROMYCIN [Suspect]
     Active Substance: ERYTHROMYCIN
     Dosage: 1 DF, 1X/DAY
  5. ERYTHROMYCIN [Suspect]
     Active Substance: ERYTHROMYCIN
     Dosage: 1 DF, 1X/DAY
     Route: 065
  6. BENZOYL PEROXIDE\CLINDAMYCIN [Suspect]
     Active Substance: BENZOYL PEROXIDE\CLINDAMYCIN
     Dosage: 1 DF, 1X/DAY
     Route: 062
  7. BENZOYL PEROXIDE\CLINDAMYCIN [Suspect]
     Active Substance: BENZOYL PEROXIDE\CLINDAMYCIN
     Dosage: 1 DF
  8. BENZOYL PEROXIDE\CLINDAMYCIN [Suspect]
     Active Substance: BENZOYL PEROXIDE\CLINDAMYCIN
     Dosage: 1 DF, 1X/DAY
  9. BUPROPION [Suspect]
     Active Substance: BUPROPION
     Dosage: 1 DF, 1X/DAY
  10. BUPROPION [Suspect]
     Active Substance: BUPROPION
     Dosage: 1 DF, 1X/DAY
  11. BUPROPION [Suspect]
     Active Substance: BUPROPION
     Dosage: 300 MG
  12. BUPROPION [Suspect]
     Active Substance: BUPROPION
     Dosage: 300 MG
     Route: 048
  13. BUPROPION [Suspect]
     Active Substance: BUPROPION
     Dosage: 300 MG
     Route: 048
  14. BUPROPION [Suspect]
     Active Substance: BUPROPION
     Dosage: 1 DF
  15. BUPROPION [Suspect]
     Active Substance: BUPROPION
     Dosage: 300 MG
  16. BUPROPION [Suspect]
     Active Substance: BUPROPION
     Dosage: UNK; TABLET
  17. CYMBALTA [Suspect]
     Active Substance: DULOXETINE HYDROCHLORIDE
     Dosage: UNK
  18. CYMBALTA [Suspect]
     Active Substance: DULOXETINE HYDROCHLORIDE
     Dosage: UNK
     Route: 048
  19. CYMBALTA [Suspect]
     Active Substance: DULOXETINE HYDROCHLORIDE
     Dosage: 30 MG
     Route: 048
  20. DULOXETINE [Suspect]
     Active Substance: DULOXETINE
     Dosage: 30 MG
  21. ERYTHROMYCIN PROPIONATE [Suspect]
     Active Substance: ERYTHROMYCIN PROPIONATE
     Indication: Acne
     Dosage: 1 DF
  22. ERYTHROMYCIN PROPIONATE [Suspect]
     Active Substance: ERYTHROMYCIN PROPIONATE
     Dosage: UNK, 1X/DAY
  23. ERYTHROMYCIN\TRETINOIN [Suspect]
     Active Substance: ERYTHROMYCIN\TRETINOIN
     Indication: Acne
     Dosage: 1 DF, 1X/DAY
  24. QUETIAPINE [Suspect]
     Active Substance: QUETIAPINE
     Dosage: 1 DF, 1X/DAY; TABLET
     Route: 048
  25. QUETIAPINE [Suspect]
     Active Substance: QUETIAPINE
     Dosage: 100 MG, 1X/DAY; TABLET
     Route: 048
  26. QUETIAPINE [Suspect]
     Active Substance: QUETIAPINE
     Dosage: 100 MG, 1X/DAY
     Route: 048
  27. QUETIAPINE [Suspect]
     Active Substance: QUETIAPINE
     Dosage: 100 MG, 1X/DAY
     Route: 048
  28. DULOXETINE HYDROCHLORIDE [Suspect]
     Active Substance: DULOXETINE HYDROCHLORIDE
     Dosage: UNK
     Route: 048
  29. DULOXETINE HYDROCHLORIDE [Suspect]
     Active Substance: DULOXETINE HYDROCHLORIDE
     Dosage: 30 MG
  30. DULOXETINE HYDROCHLORIDE [Suspect]
     Active Substance: DULOXETINE HYDROCHLORIDE
     Dosage: 30 UNK
  31. DULOXETINE HYDROCHLORIDE [Suspect]
     Active Substance: DULOXETINE HYDROCHLORIDE
     Dosage: UNK; CAPSULE
     Route: 048
  32. TRETINOIN [Suspect]
     Active Substance: TRETINOIN
     Indication: Acne
     Dosage: 1 DF, DAILY
     Route: 061
  33. TRETINOIN [Suspect]
     Active Substance: TRETINOIN
     Dosage: 1 DF, 1X/DAY
     Route: 061
  34. TRETINOIN [Suspect]
     Active Substance: TRETINOIN
     Dosage: 1 DF, 1X/DAY
     Route: 061
  35. WELLBUTRIN XL [Suspect]
     Active Substance: BUPROPION HYDROCHLORIDE
     Dosage: 1 DF, 1X/DAY
  36. WELLBUTRIN XL [Suspect]
     Active Substance: BUPROPION HYDROCHLORIDE
     Dosage: 300 MG, 1X/DAY
  37. WELLBUTRIN XL [Suspect]
     Active Substance: BUPROPION HYDROCHLORIDE
     Dosage: 300 MG, 1X/DAY
     Route: 048

REACTIONS (1)
  - Abortion spontaneous [Unknown]
